FAERS Safety Report 19749666 (Version 1)
Quarter: 2021Q3

REPORT INFORMATION
  Report Type: Spontaneous
  Country: FR (occurrence: FR)
  Receive Date: 20210826
  Receipt Date: 20210826
  Transmission Date: 20211014
  Serious: Yes (Hospitalization)
  Sender: FDA-Public Use
  Company Number: FR-TEVA-2021-FR-1945345

PATIENT
  Age: 39 Year
  Sex: Male

DRUGS (2)
  1. ATORVASTATINE [Suspect]
     Active Substance: ATORVASTATIN
     Indication: HYPERCHOLESTEROLAEMIA
     Dosage: 20MILLIGRAMTHERAPY START DATE:ASKU
     Route: 048
  2. COMIRNATY [Suspect]
     Active Substance: TOZINAMERAN
     Indication: COVID-19 IMMUNISATION
     Dosage: D1+D2DISPERSION TO BE DILUTED :UNIT DOSE:1DOSAGEFORM
     Route: 030
     Dates: start: 20210601, end: 20210713

REACTIONS (1)
  - Portosplenomesenteric venous thrombosis [Not Recovered/Not Resolved]

NARRATIVE: CASE EVENT DATE: 20210728
